FAERS Safety Report 5639849-6 (Version None)
Quarter: 2008Q1

REPORT INFORMATION
  Report Type: 
  Country: None (occurrence: None)
  Receive Date: 20080226
  Receipt Date: 20080226
  Transmission Date: 20080703
  Serious: Yes (Hospitalization)
  Sender: FDA-Public Use
  Company Number: None

PATIENT
  Sex: Female
  Weight: 53.0709 kg

DRUGS (14)
  1. DEPAKOTE [Suspect]
     Indication: BIPOLAR DISORDER
     Dosage: 1000MG  BEDTIME 8PM  PO
     Route: 048
     Dates: start: 20071129, end: 20080108
  2. DEPAKOTE [Suspect]
     Dosage: 250MG  8AM  PO
     Route: 048
     Dates: start: 20071206, end: 20080108
  3. BUPROPRION SR [Concomitant]
  4. DOCUSATE [Concomitant]
  5. ENALAPRIL MALEATE [Concomitant]
  6. FLONASE [Concomitant]
  7. LEVOTHYROXINE SODIUM [Concomitant]
  8. METAMUCIL [Concomitant]
  9. OLANZAPINE [Concomitant]
  10. ACETAMINOPHEN [Concomitant]
  11. THAIMINE [Concomitant]
  12. SIMVASTATIN [Concomitant]
  13. SENNA PLUS [Concomitant]
  14. OMEPRAZOLE [Concomitant]

REACTIONS (1)
  - NEUTROPENIA [None]
